FAERS Safety Report 9098080 (Version 1)
Quarter: 2013Q1

REPORT INFORMATION
  Report Type: Spontaneous
  Country: IN (occurrence: IN)
  Receive Date: 20130213
  Receipt Date: 20130213
  Transmission Date: 20140127
  Serious: Yes (Death)
  Sender: FDA-Public Use
  Company Number: PHHY2012IN062312

PATIENT
  Age: 48 Year
  Sex: Female

DRUGS (2)
  1. GLIVEC [Suspect]
     Indication: CHRONIC MYELOID LEUKAEMIA
     Dosage: UNK UKN, UNK
     Route: 048
  2. GLIVEC [Suspect]
     Dosage: 800 MG, UNK
     Route: 048
     Dates: start: 20120607

REACTIONS (2)
  - Death [Fatal]
  - Drug ineffective [Unknown]
